FAERS Safety Report 12376574 (Version 2)
Quarter: 2016Q2

REPORT INFORMATION
  Report Type: Report from Study
  Country: US (occurrence: US)
  Receive Date: 20160517
  Receipt Date: 20160517
  Transmission Date: 20160815
  Serious: No
  Sender: FDA-Public Use
  Company Number: US-MALLINCKRODT-T201502485

PATIENT
  Sex: Female

DRUGS (1)
  1. REPOSITORY CORTICOTROPIN INJECTION [Suspect]
     Active Substance: CORTICOTROPIN
     Indication: JUVENILE IDIOPATHIC ARTHRITIS
     Dosage: 80 UNITS TWICE WEEKLY
     Route: 058
     Dates: start: 201503

REACTIONS (5)
  - Decreased appetite [Unknown]
  - Feeling abnormal [Unknown]
  - Fatigue [Unknown]
  - Muscle spasms [Unknown]
  - Arthralgia [Unknown]
